FAERS Safety Report 4354028-0 (Version None)
Quarter: 2004Q2

REPORT INFORMATION
  Report Type: 
  Country: None (occurrence: None)
  Receive Date: 20040430
  Receipt Date: 20040419
  Transmission Date: 20050107
  Serious: Yes (Hospitalization, Disabling)
  Sender: FDA-Public Use
  Company Number: 2004-115265-NL

PATIENT
  Age: 22 Year
  Sex: Female

DRUGS (11)
  1. DEXAMETHASONE [Suspect]
     Indication: OEDEMA
     Dosage: 10 MG
     Route: 040
     Dates: start: 20040405
  2. FENTANYL [Suspect]
     Indication: ANALGESIC EFFECT
     Dosage: 100 UG
     Route: 040
     Dates: start: 20040405
  3. CITALOPRAM [Suspect]
     Indication: DEPRESSION
     Dosage: DF
     Route: 048
  4. ONDANSETRON [Suspect]
     Dosage: 4 MG
     Route: 040
     Dates: start: 20040405
  5. PROPOFOL [Suspect]
     Indication: INDUCTION OF ANAESTHESIA
     Dosage: 150 MG
     Route: 040
     Dates: start: 20040405
  6. KETOROLAC [Concomitant]
  7. ATRACURIUM BESYLATE [Concomitant]
  8. ISOFLURANE [Concomitant]
  9. NITROUS OXIDE [Concomitant]
  10. OXYCODONE [Concomitant]
  11. CO-PROXAMOL [Concomitant]

REACTIONS (3)
  - DELAYED RECOVERY FROM ANAESTHESIA [None]
  - DEPRESSED LEVEL OF CONSCIOUSNESS [None]
  - DRUG INTERACTION [None]
